FAERS Safety Report 7120624-0 (Version None)
Quarter: 2010Q4

REPORT INFORMATION
  Report Type: 
  Country: None (occurrence: None)
  Receive Date: 20101124
  Receipt Date: 20101115
  Transmission Date: 20110411
  Serious: Yes (Hospitalization)
  Sender: FDA-Public Use
  Company Number: US-CELGENEUS-163-21880-10103047

PATIENT
  Sex: Female
  Weight: 49.486 kg

DRUGS (19)
  1. REVLIMID [Suspect]
     Indication: DIFFUSE LARGE B-CELL LYMPHOMA
     Route: 048
     Dates: start: 20101019, end: 20101024
  2. RITUXAN [Suspect]
     Indication: DIFFUSE LARGE B-CELL LYMPHOMA
     Route: 065
     Dates: start: 20101019, end: 20101024
  3. ETOPOSIDE [Suspect]
     Indication: DIFFUSE LARGE B-CELL LYMPHOMA
     Route: 065
     Dates: start: 20101019, end: 20101024
  4. IFOSFAMIDE [Suspect]
     Indication: DIFFUSE LARGE B-CELL LYMPHOMA
     Route: 065
     Dates: start: 20101019, end: 20101024
  5. CARBOPLATIN [Suspect]
     Indication: DIFFUSE LARGE B-CELL LYMPHOMA
     Route: 065
     Dates: start: 20101019, end: 20101024
  6. CRESTOR [Concomitant]
     Route: 048
  7. BYSTOLIC [Concomitant]
     Indication: HYPERTENSION
     Route: 048
  8. LASIX [Concomitant]
     Indication: HYPERTENSION
     Route: 048
  9. LASIX [Concomitant]
     Route: 051
     Dates: start: 20101020, end: 20101020
  10. LASIX [Concomitant]
     Route: 051
     Dates: start: 20101022, end: 20101022
  11. DIOVAN [Concomitant]
     Indication: HYPERTENSION
     Route: 048
  12. TEKTURNA [Concomitant]
     Indication: HYPERTENSION
     Route: 048
  13. ASA [Concomitant]
     Route: 048
     Dates: start: 20101018
  14. TYLENOL (CAPLET) [Concomitant]
     Indication: PREMEDICATION
     Route: 048
     Dates: start: 20101018, end: 20101018
  15. BENADRYL [Concomitant]
     Indication: PREMEDICATION
     Route: 051
     Dates: start: 20101018, end: 20101018
  16. ZOFRAN [Concomitant]
     Indication: PREMEDICATION
     Dosage: 12MG
     Route: 051
     Dates: start: 20101019, end: 20101021
  17. NEXIUM [Concomitant]
     Indication: PROPHYLAXIS
     Route: 048
     Dates: start: 20101027, end: 20101102
  18. ALLOPURINOL [Concomitant]
     Indication: PROPHYLAXIS
     Route: 048
     Dates: start: 20101018, end: 20101028
  19. DECADRON [Concomitant]
     Indication: PREMEDICATION
     Route: 051
     Dates: start: 20101019, end: 20101021

REACTIONS (5)
  - ASTHENIA [None]
  - CLOSTRIDIUM DIFFICILE COLITIS [None]
  - ENTEROCOLITIS [None]
  - HYPOKALAEMIA [None]
  - NEUTROPENIA [None]
